FAERS Safety Report 17267530 (Version 1)
Quarter: 2020Q1

REPORT INFORMATION
  Report Type: Spontaneous
  Country: US (occurrence: US)
  Receive Date: 20200114
  Receipt Date: 20200114
  Transmission Date: 20200409
  Serious: Yes (Hospitalization)
  Sender: FDA-Public Use
  Company Number: US-SLATE RUN PHARMACEUTICALS-SLTR-AE-20-4

PATIENT
  Age: 1 Day
  Sex: Female
  Weight: 1 kg

DRUGS (5)
  1. VANCOMYCIN HCL FOR INJECTION USP [Suspect]
     Active Substance: VANCOMYCIN HYDROCHLORIDE
     Indication: STAPHYLOCOCCAL INFECTION
     Dosage: EVERY 18 HOURS
  2. CAFTAZIDIME [Concomitant]
     Dosage: DRUG STOPPED AFTER 2 DAYS.
     Route: 042
  3. RIFAMPIN. [Concomitant]
     Active Substance: RIFAMPIN
     Dosage: DRUG DISCONTINUED AFTER 3 DAYS.
     Route: 042
  4. GENTAMICIN. [Concomitant]
     Active Substance: GENTAMICIN
  5. LINEZOLID. [Concomitant]
     Active Substance: LINEZOLID
     Dosage: DRUGGED WAS STOPPED AFTER 2 DAYS.

REACTIONS (3)
  - Drug ineffective [Unknown]
  - Intracardiac thrombus [Recovered/Resolved]
  - Thrombosis [Recovered/Resolved]
